FAERS Safety Report 5629815-9 (Version None)
Quarter: 2008Q1

REPORT INFORMATION
  Report Type: 
  Country: None (occurrence: None)
  Receive Date: 20080214
  Receipt Date: 20071120
  Transmission Date: 20080703
  Serious: No
  Sender: FDA-Public Use
  Company Number: 02100-EUR-07-0163

PATIENT
  Age: 65 Year
  Sex: Male

DRUGS (4)
  1. PLETAL [Suspect]
     Indication: INTERMITTENT CLAUDICATION
     Dosage: 100 MG, BID ORAL
     Route: 048
     Dates: start: 20070502, end: 20070723
  2. ACETYLSALICYLIC ACID SRT [Concomitant]
  3. BEZAFIBRATE        (BEZAFIBRATE) [Concomitant]
  4. BISOPROLOL-HEMIFUMARATE             (BISOPROLOL) [Concomitant]

REACTIONS (1)
  - VENOUS THROMBOSIS [None]
